FAERS Safety Report 16274705 (Version 2)
Quarter: 2019Q2

REPORT INFORMATION
  Report Type: Spontaneous
  Country: US (occurrence: US)
  Receive Date: 20190506
  Receipt Date: 20190528
  Transmission Date: 20190711
  Serious: Yes (Other)
  Sender: FDA-Public Use
  Company Number: US-GLENMARK PHARMACEUTICALS-2019GMK040582

PATIENT

DRUGS (1)
  1. IMIQUIMOD CREAM USP, 5% [Suspect]
     Active Substance: IMIQUIMOD
     Indication: SKIN PAPILLOMA
     Dosage: UNK (FOUR TIMES SINCE JUN-2018)
     Route: 061
     Dates: start: 201806

REACTIONS (6)
  - Application site scab [Recovered/Resolved]
  - Drug ineffective for unapproved indication [Unknown]
  - Application site haemorrhage [Recovered/Resolved]
  - Skin cancer [Unknown]
  - Condition aggravated [Unknown]
  - Application site wound [Recovered/Resolved]

NARRATIVE: CASE EVENT DATE: 201806
